FAERS Safety Report 15979460 (Version 1)
Quarter: 2019Q1

REPORT INFORMATION
  Report Type: Spontaneous
  Country: US (occurrence: US)
  Receive Date: 20190219
  Receipt Date: 20190219
  Transmission Date: 20190418
  Serious: No
  Sender: FDA-Public Use
  Company Number: US-PFIZER INC-2019069670

PATIENT
  Age: 27 Year
  Sex: Female

DRUGS (1)
  1. GENOTROPIN [Suspect]
     Active Substance: SOMATROPIN
     Dosage: 0.2 MG, DAILY

REACTIONS (8)
  - Blood alkaline phosphatase decreased [Unknown]
  - Blood triglycerides increased [Unknown]
  - Insulin-like growth factor decreased [Unknown]
  - Blood albumin decreased [Unknown]
  - Blood sodium increased [Unknown]
  - Blood thyroid stimulating hormone decreased [Unknown]
  - Albumin globulin ratio decreased [Unknown]
  - Blood chloride increased [Unknown]

NARRATIVE: CASE EVENT DATE: 20180617
